FAERS Safety Report 7981681-2 (Version None)
Quarter: 2011Q4

REPORT INFORMATION
  Report Type: 
  Country: None (occurrence: None)
  Receive Date: 20111215
  Receipt Date: 20111209
  Transmission Date: 20120403
  Serious: No
  Sender: FDA-Public Use
  Company Number: US-BAYER-2011-118442

PATIENT
  Age: 35 Year
  Sex: Male
  Weight: 100 kg

DRUGS (4)
  1. BETASERON [Suspect]
     Indication: MULTIPLE SCLEROSIS
     Dosage: 8 MIU, QOD
     Route: 058
  2. AMLODIPINE [Concomitant]
     Dosage: 2.5 MG, UNK
  3. LISINOPRIL [Concomitant]
     Dosage: 10 MG, UNK
  4. MULTI-VITAMIN [Concomitant]

REACTIONS (1)
  - NAUSEA [None]
